FAERS Safety Report 5692785-1 (Version None)
Quarter: 2008Q2

REPORT INFORMATION
  Report Type: 
  Country: None (occurrence: None)
  Receive Date: 20080401
  Receipt Date: 20080317
  Transmission Date: 20081010
  Serious: Yes (Hospitalization, Other)
  Sender: FDA-Public Use
  Company Number: 2008S1003507

PATIENT
  Age: 66 Year
  Sex: Female

DRUGS (1)
  1. OMEPRAZOLE [Suspect]
     Indication: GASTRITIS
     Dosage: 20 MG; ORAL
     Route: 048
     Dates: end: 20080217

REACTIONS (2)
  - HYPONATRAEMIA [None]
  - LOWER RESPIRATORY TRACT INFECTION [None]
